FAERS Safety Report 8845211 (Version 1)
Quarter: 2012Q4

REPORT INFORMATION
  Report Type: Spontaneous
  Country: IN (occurrence: None)
  Receive Date: 20121015
  Receipt Date: 20121015
  Transmission Date: 20130627
  Serious: Yes (Other)
  Sender: FDA-Public Use
  Company Number: 2012SUN00127

PATIENT
  Age: 14 Year
  Sex: Female

DRUGS (1)
  1. PHENYTOIN SODIUM [Suspect]
     Indication: EPILEPSY
     Dosage: 100 mg, bid, Oral
     Route: 048

REACTIONS (2)
  - Dental pulp disorder [None]
  - Hypocalcaemia [None]
